FAERS Safety Report 14355263 (Version 4)
Quarter: 2018Q1

REPORT INFORMATION
  Report Type: Spontaneous
  Country: CN (occurrence: CN)
  Receive Date: 20180105
  Receipt Date: 20180215
  Transmission Date: 20180509
  Serious: Yes (Hospitalization, Other)
  Sender: FDA-Public Use
  Company Number: CN-ASTRAZENECA-2016SE69144

PATIENT
  Age: 63 Year
  Sex: Female
  Weight: 40 kg

DRUGS (8)
  1. SYMBICORT [Suspect]
     Active Substance: BUDESONIDE\FORMOTEROL FUMARATE DIHYDRATE
     Indication: ASTHMA
     Dosage: 160/4.5 UG, ONE INHALATION EVERY OTHER DAY
     Route: 055
  2. SYMBICORT [Suspect]
     Active Substance: BUDESONIDE\FORMOTEROL FUMARATE DIHYDRATE
     Indication: CHRONIC OBSTRUCTIVE PULMONARY DISEASE
     Dosage: 160/4.5 UG, ONE INHALATION DAILY
     Route: 055
     Dates: start: 201303
  3. CHINESE TRADITIONAL MEDICINE NOS [Concomitant]
     Active Substance: UNSPECIFIED INGREDIENT
     Indication: CHRONIC GASTRITIS
     Route: 048
     Dates: start: 201603
  4. PLENDIL [Suspect]
     Active Substance: FELODIPINE
     Indication: HYPERTENSION
     Route: 048
     Dates: start: 2008
  5. SYMBICORT [Suspect]
     Active Substance: BUDESONIDE\FORMOTEROL FUMARATE DIHYDRATE
     Indication: CHRONIC OBSTRUCTIVE PULMONARY DISEASE
     Dosage: 160/4.5  UG, TWICE DAILY
     Route: 055
     Dates: start: 2013
  6. SYMBICORT [Suspect]
     Active Substance: BUDESONIDE\FORMOTEROL FUMARATE DIHYDRATE
     Indication: CHRONIC OBSTRUCTIVE PULMONARY DISEASE
     Dosage: 160/4.5 UG, ONE INHALATION EVERY OTHER DAY
     Route: 055
  7. SYMBICORT [Suspect]
     Active Substance: BUDESONIDE\FORMOTEROL FUMARATE DIHYDRATE
     Indication: ASTHMA
     Dosage: 160/4.5  UG, TWICE DAILY
     Route: 055
     Dates: start: 2013
  8. SYMBICORT [Suspect]
     Active Substance: BUDESONIDE\FORMOTEROL FUMARATE DIHYDRATE
     Indication: ASTHMA
     Dosage: 160/4.5 UG, ONE INHALATION DAILY
     Route: 055
     Dates: start: 201303

REACTIONS (12)
  - Nephrolithiasis [Unknown]
  - Eye disorder [Unknown]
  - Tumour marker increased [Not Recovered/Not Resolved]
  - Vision blurred [Unknown]
  - Weight decreased [Unknown]
  - Intentional product use issue [Unknown]
  - Ocular hypertension [Not Recovered/Not Resolved]
  - Renal cancer [Not Recovered/Not Resolved]
  - Chronic obstructive pulmonary disease [Unknown]
  - Type 1 diabetes mellitus [Unknown]
  - Blood glucose increased [Unknown]
  - Asthma [Unknown]

NARRATIVE: CASE EVENT DATE: 2015
